FAERS Safety Report 7467822-4 (Version None)
Quarter: 2011Q2

REPORT INFORMATION
  Report Type: 
  Country: None (occurrence: None)
  Receive Date: 20110509
  Receipt Date: 20110128
  Transmission Date: 20111010
  Serious: No
  Sender: FDA-Public Use
  Company Number: US-ALEXION-A201100132

PATIENT
  Sex: Female

DRUGS (6)
  1. VITAMIN A [Concomitant]
     Dosage: UNK
     Route: 048
  2. SOLIRIS [Suspect]
     Indication: PAROXYSMAL NOCTURNAL HAEMOGLOBINURIA
     Dosage: 600 MG, QW
     Route: 042
     Dates: start: 20100727, end: 20100801
  3. FOSAMAX [Concomitant]
     Dosage: UNK
     Route: 048
  4. LIPITOR [Concomitant]
     Dosage: UNK
     Route: 048
  5. SOLIRIS [Suspect]
     Dosage: 900 MG, Q2W
     Route: 042
     Dates: start: 20100801
  6. CALCIUM [Concomitant]
     Dosage: UNK
     Route: 048

REACTIONS (1)
  - TOOTH DISORDER [None]
